FAERS Safety Report 8078966-0 (Version None)
Quarter: 2012Q1

REPORT INFORMATION
  Report Type: 
  Country: None (occurrence: None)
  Receive Date: 20120128
  Receipt Date: 20110805
  Transmission Date: 20120608
  Serious: Yes (Other)
  Sender: FDA-Public Use
  Company Number: US-ABBOTT-11P-163-0734198-00

PATIENT
  Sex: Female
  Weight: 51.756 kg

DRUGS (3)
  1. HUMIRA [Suspect]
     Indication: RHEUMATOID ARTHRITIS
     Dates: start: 20061109, end: 20110701
  2. HUMIRA [Suspect]
  3. LIPITOR [Concomitant]
     Indication: BLOOD CHOLESTEROL INCREASED
     Dosage: DAILY DOSE: 80MG

REACTIONS (4)
  - OEDEMA PERIPHERAL [None]
  - CATARACT [None]
  - TREATMENT NONCOMPLIANCE [None]
  - ARTHRALGIA [None]
